FAERS Safety Report 24842819 (Version 1)
Quarter: 2025Q1

REPORT INFORMATION
  Report Type: Spontaneous
  Country: ES (occurrence: ES)
  Receive Date: 20250115
  Receipt Date: 20250115
  Transmission Date: 20250408
  Serious: Yes (Other)
  Sender: CELLTRION
  Company Number: ES-ABBVIE-5821647

PATIENT

DRUGS (3)
  1. ADALIMUMAB [Suspect]
     Active Substance: ADALIMUMAB
     Indication: Drug reaction with eosinophilia and systemic symptoms
     Route: 058
     Dates: start: 2019
  2. ADALIMUMAB [Suspect]
     Active Substance: ADALIMUMAB
     Indication: Axial spondyloarthritis
  3. PREDNISOLONE [Concomitant]
     Active Substance: PREDNISOLONE
     Indication: Drug reaction with eosinophilia and systemic symptoms
     Route: 065
     Dates: start: 2019

REACTIONS (3)
  - Type I hypersensitivity [Recovered/Resolved]
  - Urticaria [Unknown]
  - Intentional product use issue [Unknown]
